FAERS Safety Report 18096505 (Version 2)
Quarter: 2020Q3

REPORT INFORMATION
  Report Type: Spontaneous
  Country: US (occurrence: US)
  Receive Date: 20200730
  Receipt Date: 20200730
  Transmission Date: 20201103
  Serious: Yes (Death, Hospitalization, Other)
  Sender: FDA-Public Use
  Company Number: US-CELGENEUS-USA-20200707750

PATIENT
  Age: 68 Year
  Sex: Female

DRUGS (2)
  1. REVLIMID [Suspect]
     Active Substance: LENALIDOMIDE
     Indication: PLASMA CELL MYELOMA
  2. REVLIMID [Suspect]
     Active Substance: LENALIDOMIDE
     Indication: B-CELL LYMPHOMA STAGE I
     Dosage: 20 MILLIGRAM
     Route: 048
     Dates: start: 20200513

REACTIONS (3)
  - Death [Fatal]
  - Exposure to SARS-CoV-2 [Unknown]
  - Fall [Unknown]

NARRATIVE: CASE EVENT DATE: 202007
